FAERS Safety Report 5090995-8 (Version None)
Quarter: 2006Q3

REPORT INFORMATION
  Report Type: 
  Country: None (occurrence: None)
  Receive Date: 20060829
  Receipt Date: 20060627
  Transmission Date: 20061208
  Serious: Yes (Hospitalization)
  Sender: FDA-Public Use
  Company Number: JP-SP-2006-01776

PATIENT
  Age: 64 Year
  Sex: Male

DRUGS (6)
  1. IMMUCYST [Suspect]
     Indication: BLADDER CANCER
     Route: 043
     Dates: start: 20060515, end: 20060607
  2. LOXOPROFEN SODIUM [Concomitant]
     Indication: PAIN
     Route: 048
     Dates: start: 20060607, end: 20060607
  3. ATORVASTATIN CALCIUM [Concomitant]
     Dates: start: 20060223
  4. VALSARTAN [Concomitant]
     Dates: start: 20060223
  5. CEFCAPENE PIVOXIL HYDROCHLORIDE [Concomitant]
     Dates: start: 20060515, end: 20060607
  6. REBAMIPIDE [Concomitant]
     Dates: start: 20060428, end: 20060607

REACTIONS (3)
  - ABDOMINAL PAIN UPPER [None]
  - HEPATIC FUNCTION ABNORMAL [None]
  - HYPERSENSITIVITY [None]
